FAERS Safety Report 21667954 (Version 2)
Quarter: 2022Q4

REPORT INFORMATION
  Report Type: Spontaneous
  Country: IT (occurrence: IT)
  Receive Date: 20221201
  Receipt Date: 20221216
  Transmission Date: 20230113
  Serious: Yes (Other)
  Sender: FDA-Public Use
  Company Number: IT-002147023-NVSC2022IT265494

PATIENT
  Age: 66 Year
  Sex: Male

DRUGS (6)
  1. BORTEZOMIB [Suspect]
     Active Substance: BORTEZOMIB
     Indication: Glomerulonephritis proliferative
     Dosage: 1.3 MG/M2, CYCLIC (ON DAYS 1, 8, 15, 22)EACH OF THESE FOR 35 DAYS)(8 CYCLES)
     Route: 058
  2. DEXAMETHASONE [Suspect]
     Active Substance: DEXAMETHASONE
     Indication: Glomerulonephritis proliferative
     Dosage: 20 MG, CYCLIC (ON DAYS 1, 8, 15,22, EACH OF THESE FOR 35 DAYS)(8 CYCLES)
     Route: 048
  3. CYCLOPHOSPHAMIDE [Suspect]
     Active Substance: CYCLOPHOSPHAMIDE
     Indication: Glomerulonephritis proliferative
     Dosage: 350 MG, CYCLIC (ON DAYS 1, 8, 15) EACH OF THESE FOR 35 DAYS)(8 CYCLES)
     Route: 048
  4. ACYCLOVIR [Concomitant]
     Active Substance: ACYCLOVIR
     Indication: Prophylaxis
     Dosage: UNK
     Route: 065
  5. FLUCONAZOLE [Concomitant]
     Active Substance: FLUCONAZOLE
     Indication: Prophylaxis
     Dosage: UNK
     Route: 065
  6. SULFAMETHOXAZOLE\TRIMETHOPRIM [Concomitant]
     Active Substance: SULFAMETHOXAZOLE\TRIMETHOPRIM
     Indication: Prophylaxis
     Dosage: UNK
     Route: 065

REACTIONS (4)
  - Glomerulonephritis proliferative [Unknown]
  - Disease progression [Unknown]
  - Therapy non-responder [Unknown]
  - Product use in unapproved indication [Unknown]
